FAERS Safety Report 9190412 (Version 1)
Quarter: 2013Q1

REPORT INFORMATION
  Report Type: Spontaneous
  Country: US (occurrence: None)
  Receive Date: 20120703
  Receipt Date: 20120703
  Transmission Date: 20140127
  Serious: Yes (Other)
  Sender: FDA-Public Use
  Company Number: PHEH2012US008519

PATIENT
  Age: 63 Year
  Sex: Female

DRUGS (6)
  1. GILENYA [Suspect]
     Indication: MULTIPLE SCLEROSIS
     Route: 048
     Dates: start: 20120418
  2. FOSAMAX (ALENDRONATE SODIUM) [Concomitant]
  3. SIMVASTATIN (SIMVASTATIN) [Concomitant]
  4. CARBAMAZEPINE (CARBAMAZEPINE) [Concomitant]
  5. GABAPENTIN (GABAPENTIN) [Concomitant]
  6. LEVOTHYROXINE (LEVOTHYROXINE) [Concomitant]

REACTIONS (2)
  - Blood pressure systolic increased [None]
  - Overdose [None]
